FAERS Safety Report 6134736-1 (Version None)
Quarter: 2009Q1

REPORT INFORMATION
  Report Type: 
  Country: None (occurrence: None)
  Receive Date: 20090327
  Receipt Date: 20090323
  Transmission Date: 20090719
  Serious: Yes (Hospitalization, Congenital Anomaly)
  Sender: FDA-Public Use
  Company Number: US-KINGPHARMUSA00001-K200900331

PATIENT
  Sex: Male

DRUGS (1)
  1. CORGARD [Suspect]
     Dosage: 80 MG, QD
     Route: 064
     Dates: start: 20080530, end: 20090226

REACTIONS (5)
  - DRUG EXPOSURE DURING PREGNANCY [None]
  - FOETAL ARRHYTHMIA [None]
  - FOETAL GROWTH RETARDATION [None]
  - HYPOGLYCAEMIA [None]
  - OLIGOHYDRAMNIOS [None]
